FAERS Safety Report 10511267 (Version 1)
Quarter: 2014Q4

REPORT INFORMATION
  Report Type: Spontaneous
  Country: GB (occurrence: GB)
  Receive Date: 20141010
  Receipt Date: 20141010
  Transmission Date: 20150528
  Serious: Yes (Other)
  Sender: FDA-Public Use
  Company Number: GB-PFIZER INC-2014274243

PATIENT
  Age: 63 Year
  Sex: Female
  Weight: 99.5 kg

DRUGS (1)
  1. IRINOTECAN HCL [Suspect]
     Active Substance: IRINOTECAN HYDROCHLORIDE
     Dosage: 400 MG, UNK
     Route: 042
     Dates: start: 20140925, end: 20140925

REACTIONS (2)
  - Pruritus [Unknown]
  - Needle track marks [Unknown]

NARRATIVE: CASE EVENT DATE: 20140925
